FAERS Safety Report 7380658-8 (Version None)
Quarter: 2011Q1

REPORT INFORMATION
  Report Type: 
  Country: None (occurrence: None)
  Receive Date: 20110325
  Receipt Date: 20110325
  Transmission Date: 20110831
  Serious: Yes (Hospitalization)
  Sender: FDA-Public Use
  Company Number: None

PATIENT
  Age: 85 Year
  Sex: Male
  Weight: 60.6 kg

DRUGS (13)
  1. LIPITOR [Concomitant]
  2. MEGACE [Concomitant]
  3. ASPIRIN [Concomitant]
  4. DIGOXIN [Suspect]
     Indication: ATRIAL FIBRILLATION
     Dosage: 0.125 MG EVERY OTHER DAY PO  CHRONIC
     Route: 048
  5. DIGOXIN [Suspect]
     Indication: CORONARY ARTERY DISEASE
     Dosage: 0.125 MG EVERY OTHER DAY PO  CHRONIC
     Route: 048
  6. LASIX [Concomitant]
  7. CALCIUM CHLORIDE [Concomitant]
  8. AMLODIPINE [Concomitant]
  9. LEVOTHYROXINE [Concomitant]
  10. DESMOPRESSIN ACETATE [Concomitant]
  11. NIASPAN [Concomitant]
  12. ARICEPT [Concomitant]
  13. COREG [Concomitant]

REACTIONS (9)
  - RECTAL HAEMORRHAGE [None]
  - PNEUMONIA ASPIRATION [None]
  - BRADYCARDIA [None]
  - CONDITION AGGRAVATED [None]
  - ACUTE RESPIRATORY FAILURE [None]
  - TOXICITY TO VARIOUS AGENTS [None]
  - GASTROENTERITIS RADIATION [None]
  - CARDIOACTIVE DRUG LEVEL ABOVE THERAPEUTIC [None]
  - RENAL FAILURE ACUTE [None]
